FAERS Safety Report 9124674 (Version 1)
Quarter: 2013Q1

REPORT INFORMATION
  Report Type: Spontaneous
  Country: US (occurrence: US)
  Receive Date: 20130116
  Receipt Date: 20130116
  Transmission Date: 20140127
  Serious: Yes (Other)
  Sender: FDA-Public Use
  Company Number: US-RB-048459-13

PATIENT
  Sex: Female

DRUGS (1)
  1. MUCINEX [Suspect]
     Indication: NASOPHARYNGITIS
     Dosage: 1 DOSE.
     Route: 048
     Dates: start: 20121229

REACTIONS (29)
  - Hallucination, visual [Unknown]
  - Anxiety [Unknown]
  - Agitation [Unknown]
  - Palpitations [Unknown]
  - Heart rate increased [Unknown]
  - Insomnia [Unknown]
  - Nervousness [Unknown]
  - Abdominal pain [Unknown]
  - Urinary retention [Unknown]
  - Respiration abnormal [Unknown]
  - Pyrexia [Unknown]
  - Hyperhidrosis [Unknown]
  - Dissociation [Unknown]
  - Mydriasis [Unknown]
  - Ocular hyperaemia [Unknown]
  - Vision blurred [Unknown]
  - Pruritus [Unknown]
  - Dyspnoea [Unknown]
  - Somnolence [Unknown]
  - Dry mouth [Unknown]
  - Chapped lips [Unknown]
  - Headache [Unknown]
  - Nausea [Unknown]
  - Vomiting [Unknown]
  - Rash [Unknown]
  - Diarrhoea [Unknown]
  - Abdominal discomfort [Unknown]
  - Dizziness [Unknown]
  - Hypopnoea [None]
